FAERS Safety Report 23819198 (Version 2)
Quarter: 2025Q2

REPORT INFORMATION
  Report Type: Spontaneous
  Country: AU (occurrence: AU)
  Receive Date: 20240506
  Receipt Date: 20250624
  Transmission Date: 20250717
  Serious: Yes (Other)
  Sender: SANOFI AVENTIS
  Company Number: None

PATIENT
  Age: 36 Year
  Sex: Male

DRUGS (10)
  1. LEFLUNOMIDE [Suspect]
     Active Substance: LEFLUNOMIDE
     Indication: Pancreatic neuroendocrine tumour
     Route: 048
     Dates: start: 202203, end: 202206
  2. LEFLUNOMIDE [Suspect]
     Active Substance: LEFLUNOMIDE
     Indication: Multiple endocrine neoplasia Type 1
  3. CAPECITABINE [Suspect]
     Active Substance: CAPECITABINE
     Indication: Multiple endocrine neoplasia Type 1
     Route: 048
     Dates: start: 201906, end: 201911
  4. CAPECITABINE [Suspect]
     Active Substance: CAPECITABINE
     Indication: Pancreatic neuroendocrine tumour
  5. FLUOROURACIL [Suspect]
     Active Substance: FLUOROURACIL
     Indication: Pancreatic neuroendocrine tumour
     Route: 042
     Dates: start: 202109, end: 202202
  6. FLUOROURACIL [Suspect]
     Active Substance: FLUOROURACIL
     Indication: Multiple endocrine neoplasia Type 1
  7. LEUCOVORIN CALCIUM [Suspect]
     Active Substance: LEUCOVORIN CALCIUM
     Indication: Pancreatic neuroendocrine tumour
     Route: 042
     Dates: start: 202109, end: 202202
  8. LEUCOVORIN CALCIUM [Suspect]
     Active Substance: LEUCOVORIN CALCIUM
     Indication: Multiple endocrine neoplasia Type 1
  9. SUNITINIB [Suspect]
     Active Substance: SUNITINIB
     Indication: Multiple endocrine neoplasia Type 1
     Dosage: 37.5 MG, QD
     Route: 048
     Dates: start: 201911, end: 202202
  10. SUNITINIB [Suspect]
     Active Substance: SUNITINIB
     Indication: Pancreatic neuroendocrine tumour metastatic
     Dosage: 37.5 MG, QD
     Route: 048
     Dates: start: 202210, end: 202212

REACTIONS (4)
  - Malignant ascites [Recovering/Resolving]
  - Metastases to central nervous system [Recovered/Resolved]
  - Pancreatic neuroendocrine tumour metastatic [Recovered/Resolved]
  - Product use in unapproved indication [Unknown]

NARRATIVE: CASE EVENT DATE: 20191216
